FAERS Safety Report 23094527 (Version 2)
Quarter: 2023Q4

REPORT INFORMATION
  Report Type: Spontaneous
  Country: DE (occurrence: DE)
  Receive Date: 20231023
  Receipt Date: 20231103
  Transmission Date: 20240109
  Serious: Yes (Other)
  Sender: FDA-Public Use
  Company Number: DE-SA-2018SA300255

PATIENT
  Age: 68 Year
  Sex: Male

DRUGS (27)
  1. ACYCLOVIR [Suspect]
     Active Substance: ACYCLOVIR
     Indication: Herpes zoster
     Dosage: UNK
     Route: 065
  2. ACYCLOVIR [Suspect]
     Active Substance: ACYCLOVIR
     Indication: Trigeminal neuralgia
     Dosage: AT NIGHT
     Route: 065
  3. AMITRIPTYLINE HYDROCHLORIDE [Suspect]
     Active Substance: AMITRIPTYLINE HYDROCHLORIDE
     Dosage: 10 DROPS (WEEK 8)
  4. AMITRIPTYLINE HYDROCHLORIDE [Suspect]
     Active Substance: AMITRIPTYLINE HYDROCHLORIDE
     Indication: Trigeminal neuralgia
     Dosage: 20 MG
     Route: 065
  5. AMITRIPTYLINE HYDROCHLORIDE [Suspect]
     Active Substance: AMITRIPTYLINE HYDROCHLORIDE
     Dosage: 25 MG, QD (10 DROPS)
  6. CAPSAICIN [Suspect]
     Active Substance: CAPSAICIN
     Indication: Post herpetic neuralgia
     Dosage: DAILY DOSE (8 PERCENT)
     Route: 061
  7. DEXAMETHASONE [Suspect]
     Active Substance: DEXAMETHASONE
     Indication: Post herpetic neuralgia
     Dosage: UNK
     Route: 065
  8. GABAPENTIN [Suspect]
     Active Substance: GABAPENTIN
     Dosage: 600-300-300 MG (WEEK 17)
     Route: 065
  9. GABAPENTIN [Suspect]
     Active Substance: GABAPENTIN
     Indication: Trigeminal neuralgia
     Dosage: 1800 MG, QD 600-300-300 MG,THE MAN TOOK INCREASED DOSE UPTO 2400 MG/DAY
     Route: 065
  10. GABAPENTIN [Suspect]
     Active Substance: GABAPENTIN
     Dosage: 2400 MG, QD
     Route: 065
  11. GABAPENTIN [Suspect]
     Active Substance: GABAPENTIN
     Dosage: 600 MG, QD (WEEK 8)
     Route: 065
  12. HYDROMORPHONE [Suspect]
     Active Substance: HYDROMORPHONE
     Indication: Post herpetic neuralgia
     Dosage: 4 MG
     Route: 065
  13. HYDROMORPHONE [Suspect]
     Active Substance: HYDROMORPHONE
     Indication: Trigeminal neuralgia
     Dosage: 8 MG, (4-0-4 MG)
     Route: 065
  14. LIDOCAINE HYDROCHLORIDE [Suspect]
     Active Substance: DEXTROSE MONOHYDRATE\EPINEPHRINE\EPINEPHRINE BITARTRATE\LIDOCAINE\LIDOCAINE HYDROCHLORIDE\LIDOCAINE
     Indication: Trigeminal neuralgia
     Dosage: QHS
     Route: 061
  15. LIDOCAINE HYDROCHLORIDE [Suspect]
     Active Substance: DEXTROSE MONOHYDRATE\EPINEPHRINE\EPINEPHRINE BITARTRATE\LIDOCAINE\LIDOCAINE HYDROCHLORIDE\LIDOCAINE
     Dosage: UNK, INFUSION
     Route: 065
  16. AMBROXOL HYDROCHLORIDE [Suspect]
     Active Substance: AMBROXOL HYDROCHLORIDE
     Indication: Pain
     Dosage: 20 PERCENT OINTMENT
     Route: 065
  17. AMBROXOL HYDROCHLORIDE [Suspect]
     Active Substance: AMBROXOL HYDROCHLORIDE
     Indication: Post herpetic neuralgia
  18. OXCARBAZEPINE [Suspect]
     Active Substance: OXCARBAZEPINE
     Indication: Post herpetic neuralgia
     Dosage: 300 MG, QD (2X150MG)
     Route: 065
  19. OXCARBAZEPINE [Suspect]
     Active Substance: OXCARBAZEPINE
     Indication: Trigeminal neuralgia
     Dosage: 600 MG, 4X150 LATER REDUCED TO 2X150 MG
     Route: 065
  20. OXCARBAZEPINE [Suspect]
     Active Substance: OXCARBAZEPINE
     Dosage: UNK, WEEK 8
     Route: 065
  21. PREGABALIN [Suspect]
     Active Substance: PREGABALIN
     Indication: Trigeminal neuralgia
     Dosage: UNK
     Route: 065
  22. PREGABALIN [Suspect]
     Active Substance: PREGABALIN
     Indication: Post herpetic neuralgia
  23. TAPENTADOL HYDROCHLORIDE [Suspect]
     Active Substance: TAPENTADOL HYDROCHLORIDE
     Indication: Trigeminal neuralgia
     Dosage: 500 MG, 1X/DAY (150 - 150 - 200 MG)
     Route: 065
  24. TAPENTADOL HYDROCHLORIDE [Suspect]
     Active Substance: TAPENTADOL HYDROCHLORIDE
     Dosage: 100-100-200 MG (AFTER 8 MONTHS), TID
     Route: 065
  25. TAPENTADOL HYDROCHLORIDE [Suspect]
     Active Substance: TAPENTADOL HYDROCHLORIDE
     Indication: Post herpetic neuralgia
     Dosage: 150-150-200 MG; LATER REDUCED TO 100-100-200 MG, TID
     Route: 065
  26. AMBROXOL [Concomitant]
     Active Substance: AMBROXOL
     Indication: Post herpetic neuralgia
     Dosage: UNK
     Route: 061
  27. DEXKETOPROFEN [Concomitant]
     Active Substance: DEXKETOPROFEN
     Indication: Post herpetic neuralgia
     Dosage: UNK
     Route: 065

REACTIONS (29)
  - Atrial fibrillation [Unknown]
  - Glaucoma [Unknown]
  - Fatigue [Unknown]
  - Sleep apnoea syndrome [Unknown]
  - Insomnia [Unknown]
  - Quality of life decreased [Unknown]
  - Depression [Unknown]
  - Nasopharyngitis [Unknown]
  - Sleep deficit [Recovered/Resolved]
  - Fall [Unknown]
  - Constipation [Unknown]
  - Liver function test increased [Unknown]
  - Benign prostatic hyperplasia [Unknown]
  - Hypoaesthesia [Unknown]
  - Hyperaesthesia [Unknown]
  - Osteoarthritis [Unknown]
  - Confusional state [Unknown]
  - Blood creatinine increased [Unknown]
  - Drug eruption [Unknown]
  - Erythema [Unknown]
  - Burning sensation [Unknown]
  - Application site pain [Unknown]
  - Post herpetic neuralgia [Unknown]
  - Application site erythema [Unknown]
  - Therapeutic product effect incomplete [Unknown]
  - Intentional product use issue [Unknown]
  - Off label use [Unknown]
  - Drug ineffective [Unknown]
  - Drug ineffective [Unknown]
